FAERS Safety Report 9951944 (Version 1)
Quarter: 2014Q1

REPORT INFORMATION
  Report Type: Report from Study
  Country: US (occurrence: US)
  Receive Date: 20140304
  Receipt Date: 20140304
  Transmission Date: 20141002
  Serious: No
  Sender: FDA-Public Use
  Company Number: US-ABBVIE-13P-163-1071395-00

PATIENT
  Age: 36 Year
  Sex: Female

DRUGS (10)
  1. HUMIRA [Suspect]
     Indication: CROHN^S DISEASE
     Dates: start: 20121130
  2. SPIRONOLACTONE [Concomitant]
     Indication: ACNE
  3. METFORMIN [Concomitant]
     Indication: POLYCYSTIC OVARIES
  4. PHENTERMINE [Concomitant]
     Indication: WEIGHT DECREASED
     Dosage: DAILY
  5. LIALDA [Concomitant]
     Indication: CROHN^S DISEASE
     Dosage: 1.2 GM 4 TABLETS DAILY
  6. SUMATRIPTAN [Concomitant]
     Indication: MIGRAINE
  7. ALBUTEROL HFA [Concomitant]
     Indication: ASTHMA EXERCISE INDUCED
  8. FLINTSTONES MULTIPLE VITAMINS [Concomitant]
     Indication: VITAMIN SUPPLEMENTATION
     Dosage: 1 CHEWABLE DAILY
  9. VITAMIN D [Concomitant]
     Indication: VITAMIN SUPPLEMENTATION
     Dosage: 1000 UNITS 2-3 DAILY
  10. VIACTIVE CALCIUM W/VITAMIN D [Concomitant]
     Indication: MINERAL SUPPLEMENTATION
     Dosage: 500MG 2 CHEWABLE DAILY

REACTIONS (8)
  - Cough [Recovering/Resolving]
  - Nasal congestion [Not Recovered/Not Resolved]
  - Oropharyngeal pain [Not Recovered/Not Resolved]
  - Rhinorrhoea [Not Recovered/Not Resolved]
  - Eye pruritus [Not Recovered/Not Resolved]
  - Lacrimation increased [Not Recovered/Not Resolved]
  - Chest discomfort [Recovering/Resolving]
  - Respiratory tract congestion [Recovering/Resolving]
